FAERS Safety Report 6945349-3 (Version None)
Quarter: 2010Q3

REPORT INFORMATION
  Report Type: 
  Country: None (occurrence: None)
  Receive Date: 20100827
  Receipt Date: 20100816
  Transmission Date: 20110219
  Serious: No
  Sender: FDA-Public Use
  Company Number: US-JNJFOC-20100806081

PATIENT
  Sex: Female
  Weight: 72.58 kg

DRUGS (10)
  1. FENTANYL CITRATE [Suspect]
     Indication: BACK PAIN
     Route: 062
  2. DURAGESIC-100 [Suspect]
     Indication: BACK PAIN
     Route: 062
  3. BENECOL [Concomitant]
     Indication: BLOOD PRESSURE
     Route: 048
  4. ZOLOFT [Concomitant]
     Indication: DEPRESSION
     Route: 048
  5. FOSAMAX [Concomitant]
     Indication: INTERVERTEBRAL DISC DEGENERATION
     Route: 048
  6. FOSAMAX [Concomitant]
     Indication: OSTEOPOROSIS
     Route: 048
  7. NORCO [Concomitant]
     Indication: INTERVERTEBRAL DISC DEGENERATION
     Route: 048
  8. NORCO [Concomitant]
     Indication: OSTEOPOROSIS
     Route: 048
  9. VITAMIN D [Concomitant]
     Indication: OSTEOPOROSIS
     Route: 048
  10. CALCIUM [Concomitant]
     Indication: OSTEOPOROSIS
     Route: 048

REACTIONS (2)
  - PRODUCT ADHESION ISSUE [None]
  - WRONG TECHNIQUE IN DRUG USAGE PROCESS [None]
